FAERS Safety Report 17828113 (Version 3)
Quarter: 2022Q3

REPORT INFORMATION
  Report Type: Spontaneous
  Country: MY (occurrence: MY)
  Receive Date: 20200527
  Receipt Date: 20220914
  Transmission Date: 20221026
  Serious: Yes (Hospitalization, Other)
  Sender: FDA-Public Use
  Company Number: MY-MLMSERVICE-20200519-2309278-1

PATIENT
  Age: 35 Year
  Sex: Female

DRUGS (8)
  1. METHYLPREDNISOLONE SODIUM SUCCINATE [Suspect]
     Active Substance: METHYLPREDNISOLONE SODIUM SUCCINATE
     Indication: Lupus nephritis
     Dosage: 500 MG, 1X/DAY
     Route: 042
     Dates: start: 2019
  2. PREDNISOLONE [Suspect]
     Active Substance: PREDNISOLONE
     Indication: Systemic lupus erythematosus
     Dosage: 5 MG, 1X/DAY
     Dates: start: 2010
  3. PREDNISOLONE [Suspect]
     Active Substance: PREDNISOLONE
     Indication: Lupus nephritis
     Dosage: 0.75 MG/KG, 1X/DAY
     Route: 048
     Dates: start: 2012
  4. PREDNISOLONE [Suspect]
     Active Substance: PREDNISOLONE
     Dosage: 1 MG/KG, 1X/DAY
     Route: 048
     Dates: start: 2013
  5. PREDNISOLONE [Suspect]
     Active Substance: PREDNISOLONE
     Dosage: 0.5 MG/KG, 1X/DAY
     Route: 048
     Dates: start: 2019
  6. CYCLOPHOSPHAMIDE [Suspect]
     Active Substance: CYCLOPHOSPHAMIDE
     Indication: Lupus nephritis
     Dosage: 0.5 G/M2 (850 MG)
     Route: 042
     Dates: start: 2019
  7. AZATHIOPRINE [Suspect]
     Active Substance: AZATHIOPRINE
     Indication: Systemic lupus erythematosus
     Dosage: 125 MG, 1X/DAY
     Dates: start: 2010
  8. HYDROXYCHLOROQUINE [Concomitant]
     Active Substance: HYDROXYCHLOROQUINE
     Indication: Systemic lupus erythematosus
     Dosage: 400 MG, 1X/DAY
     Dates: start: 2010

REACTIONS (4)
  - Tenosynovitis [Recovered/Resolved]
  - Mycobacterial infection [Recovering/Resolving]
  - Bone tuberculosis [Recovering/Resolving]
  - Extrapulmonary tuberculosis [Recovering/Resolving]

NARRATIVE: CASE EVENT DATE: 20190701
